FAERS Safety Report 22222113 (Version 1)
Quarter: 2023Q2

REPORT INFORMATION
  Report Type: Spontaneous
  Country: US (occurrence: US)
  Receive Date: 20230418
  Receipt Date: 20230418
  Transmission Date: 20230722
  Serious: No
  Sender: FDA-Public Use
  Company Number: US-KVK-TECH, INC-20230100003

PATIENT
  Age: 40 Year
  Sex: Female
  Weight: 76.19 kg

DRUGS (1)
  1. PHENTERMINE HYDROCHLORIDE [Suspect]
     Active Substance: PHENTERMINE HYDROCHLORIDE
     Indication: Weight increased
     Dosage: UNK UNK, (1 WHOLE TABLET IN THE MORNING AND HALF A TABLET IN THE AFTERNOON)
     Route: 048
     Dates: end: 20230104

REACTIONS (2)
  - Wrong technique in product usage process [Unknown]
  - Drug ineffective [Unknown]

NARRATIVE: CASE EVENT DATE: 20221101
